FAERS Safety Report 12193396 (Version 2)
Quarter: 2016Q2

REPORT INFORMATION
  Report Type: Report from Study
  Country: US (occurrence: US)
  Receive Date: 20160320
  Receipt Date: 20160621
  Transmission Date: 20160815
  Serious: Yes (Hospitalization)
  Sender: FDA-Public Use
  Company Number: US-B.I. PHARMACEUTICALS,INC./RIDGEFIELD-2015-BI-67701BP

PATIENT
  Sex: Female

DRUGS (1)
  1. OFEV [Suspect]
     Active Substance: NINTEDANIB
     Indication: IDIOPATHIC PULMONARY FIBROSIS
     Dosage: 300 MG
     Route: 048
     Dates: start: 20151019

REACTIONS (10)
  - Respiratory tract congestion [Unknown]
  - Rhinorrhoea [Unknown]
  - Cough [Unknown]
  - Appendicectomy [Unknown]
  - Sinus congestion [Unknown]
  - Nasopharyngitis [Unknown]
  - Bronchitis [Unknown]
  - Cellulitis [Unknown]
  - Arthralgia [Unknown]
  - Pneumonia [Unknown]
